FAERS Safety Report 9343145 (Version 3)
Quarter: 2014Q1

REPORT INFORMATION
  Report Type: Spontaneous
  Country: IT (occurrence: IT)
  Receive Date: 20130611
  Receipt Date: 20140128
  Transmission Date: 20141002
  Serious: Yes (Other)
  Sender: FDA-Public Use
  Company Number: IT-PFIZER INC-2013175996

PATIENT
  Age: 32 Year
  Sex: Female

DRUGS (6)
  1. XANAX [Suspect]
     Dosage: UNK
     Route: 048
  2. XANAX [Suspect]
     Dosage: 40 MG, TOTAL DOSE
     Route: 048
     Dates: start: 20130423, end: 20130423
  3. VENLAFAXINE HCL [Suspect]
     Dosage: UNK
     Route: 048
  4. VENLAFAXINE HCL [Suspect]
     Dosage: 2.7 G, TOTAL DOSAGE
     Route: 048
     Dates: start: 20130423, end: 20130423
  5. GABAPENTIN [Suspect]
     Dosage: UNK
     Route: 048
  6. GABAPENTIN [Suspect]
     Dosage: 130 DF, TOTAL DOSAGE
     Route: 048
     Dates: start: 20130423, end: 20130423

REACTIONS (4)
  - Overdose [Recovering/Resolving]
  - Sopor [Recovering/Resolving]
  - Speech disorder [Recovering/Resolving]
  - Drug abuse [Recovering/Resolving]
